FAERS Safety Report 9357942 (Version 2)
Quarter: 2013Q2

REPORT INFORMATION
  Report Type: Spontaneous
  Country: DE (occurrence: DE)
  Receive Date: 20130620
  Receipt Date: 20130625
  Transmission Date: 20140414
  Serious: Yes (Other)
  Sender: FDA-Public Use
  Company Number: DE-NOVOPROD-380682

PATIENT
  Age: 50 Year
  Sex: Female
  Weight: 116 kg

DRUGS (2)
  1. VICTOZA [Suspect]
     Indication: DIABETES MELLITUS
     Dosage: 1.2 MG, QD
     Route: 065
     Dates: start: 20121113, end: 20130214
  2. VICTOZA [Suspect]
     Dosage: UNK
     Route: 065

REACTIONS (1)
  - Hepatitis acute [Recovered/Resolved]
